FAERS Safety Report 14583588 (Version 1)
Quarter: 2018Q1

REPORT INFORMATION
  Report Type: Spontaneous
  Country: US (occurrence: US)
  Receive Date: 20180227
  Receipt Date: 20180227
  Transmission Date: 20180509
  Serious: Yes (Disabling)
  Sender: FDA-Public Use
  Company Number: None

PATIENT
  Age: 35 Year
  Sex: Female
  Weight: 123.3 kg

DRUGS (3)
  1. INVEGA [Suspect]
     Active Substance: PALIPERIDONE
     Indication: DEPRESSION
     Dates: start: 20150302
  2. INVEGA [Suspect]
     Active Substance: PALIPERIDONE
     Indication: POST-TRAUMATIC STRESS DISORDER
     Dates: start: 20150302
  3. OXYBUTYNIN. [Concomitant]
     Active Substance: OXYBUTYNIN CHLORIDE

REACTIONS (5)
  - Quality of life decreased [None]
  - Mental disorder [None]
  - Condition aggravated [None]
  - Urinary incontinence [None]
  - Depression [None]

NARRATIVE: CASE EVENT DATE: 20150302
